FAERS Safety Report 6208777-X (Version None)
Quarter: 2009Q2

REPORT INFORMATION
  Report Type: 
  Country: None (occurrence: None)
  Receive Date: 20090529
  Receipt Date: 20090429
  Transmission Date: 20091009
  Serious: No
  Sender: FDA-Public Use
  Company Number: US-BAYER-200911363BCC

PATIENT
  Age: 36 Year
  Sex: Female
  Weight: 68 kg

DRUGS (6)
  1. ALEVE [Suspect]
     Indication: NERVE COMPRESSION
     Dosage: TOTAL DAILY DOSE: 440 MG  UNIT DOSE: 220 MG
     Route: 048
     Dates: start: 20090428
  2. EXTRA STRENGTH TYLENOL [Concomitant]
     Indication: NERVE COMPRESSION
     Dosage: TOOK 1-2 TABLETS EVERY SIX HOURS
     Route: 048
  3. MOTRIN [Concomitant]
     Indication: NERVE COMPRESSION
     Dosage: 1-2 TIMES DAILY
     Route: 065
  4. UNKNOWN MULTI-VITAMIN WITH IRON [Concomitant]
     Indication: DRUG USE FOR UNKNOWN INDICATION
     Dosage: UNK
     Route: 065
  5. UNKNOWN CALCIUM SUPPLEMENT [Concomitant]
     Indication: DRUG USE FOR UNKNOWN INDICATION
     Dosage: UNK
     Route: 065
  6. UNKNOWN MAGNESIUM SUPPLEMENT [Concomitant]
     Indication: DRUG USE FOR UNKNOWN INDICATION
     Dosage: UNK
     Route: 065

REACTIONS (1)
  - NERVE COMPRESSION [None]
